FAERS Safety Report 20517269 (Version 1)
Quarter: 2022Q1

REPORT INFORMATION
  Report Type: Spontaneous
  Country: GB (occurrence: GB)
  Receive Date: 20220225
  Receipt Date: 20220225
  Transmission Date: 20220423
  Serious: Yes (Other)
  Sender: FDA-Public Use
  Company Number: GB-TILLOMED LABORATORIES LTD.-2022-EPL-000315

PATIENT

DRUGS (3)
  1. IMODIUM [Suspect]
     Active Substance: LOPERAMIDE HYDROCHLORIDE
     Indication: Diarrhoea
     Dosage: 2MG, 4 DOSAGE FORM, BID (4 CAPSULES IN THE MORNING AND 4 AT NIGHT)
     Route: 048
     Dates: start: 201904
  2. IMODIUM [Suspect]
     Active Substance: LOPERAMIDE HYDROCHLORIDE
     Indication: Colon cancer
     Dosage: 2MG, 5 DOSAGE FORM, BID (5 DURING MORNING AND 5 AT NIGHT )
     Route: 048
  3. IMODIUM [Suspect]
     Active Substance: LOPERAMIDE HYDROCHLORIDE
     Dosage: 2MG, ANY EXTRA TO ENSURE A LOOSE BOWEL MOVEMENT, WHICH USUALLY AMOUNTED TO THREE EXTRA PER DAY
     Route: 048

REACTIONS (7)
  - Heart rate irregular [Unknown]
  - Dyspnoea [Unknown]
  - Somnolence [Unknown]
  - Fatigue [Unknown]
  - Flatulence [Unknown]
  - Prescribed overdose [Unknown]
  - Off label use [Unknown]
